FAERS Safety Report 9073232 (Version 1)
Quarter: 2013Q1

REPORT INFORMATION
  Report Type: Report from Study
  Country: US (occurrence: US)
  Receive Date: 20130129
  Receipt Date: 20130129
  Transmission Date: 20140127
  Serious: No
  Sender: FDA-Public Use
  Company Number: US-ABBOTT-12P-163-0938126-00

PATIENT
  Age: 65 Year
  Sex: Male

DRUGS (2)
  1. HUMIRA 40 MG/0.8 ML PEN [Suspect]
     Indication: PSORIASIS
     Dosage: DOSE HELD ON 18 MAY 2012 UNTIL SYMPTOMS RESOLVE
     Route: 058
     Dates: start: 20120316
  2. JANUMET [Concomitant]
     Indication: HYPOGLYCAEMIA

REACTIONS (4)
  - Drug dose omission [Unknown]
  - Productive cough [Recovering/Resolving]
  - Bronchitis [Recovering/Resolving]
  - Cough [Unknown]
